FAERS Safety Report 4941067-1 (Version None)
Quarter: 2006Q1

REPORT INFORMATION
  Report Type: 
  Country: None (occurrence: None)
  Receive Date: 20060307
  Receipt Date: 20060220
  Transmission Date: 20060701
  Serious: Yes (Death)
  Sender: FDA-Public Use
  Company Number: 2006MP000215

PATIENT
  Age: 80 Year
  Sex: Female

DRUGS (4)
  1. AGGRASTAT [Suspect]
     Indication: ANGINA UNSTABLE
     Dosage: IV
     Route: 042
     Dates: start: 20060104
  2. HEPARIN [Concomitant]
  3. INSULIN [Concomitant]
  4. METFORMIN [Concomitant]

REACTIONS (3)
  - CORONARY ARTERY STENOSIS [None]
  - ELECTROCARDIOGRAM ST SEGMENT DEPRESSION [None]
  - TROPONIN I INCREASED [None]
